FAERS Safety Report 25731287 (Version 2)
Quarter: 2025Q4

REPORT INFORMATION
  Report Type: Spontaneous
  Country: US (occurrence: US)
  Receive Date: 20250827
  Receipt Date: 20251007
  Transmission Date: 20260117
  Serious: No
  Sender: PFIZER
  Company Number: US-PFIZER INC-202500167200

PATIENT
  Age: 57 Year
  Sex: Male
  Weight: 123.63 kg

DRUGS (1)
  1. BICILLIN L-A [Suspect]
     Active Substance: PENICILLIN G BENZATHINE
     Indication: Syphilis
     Dosage: 2.4MU IM; 2.4MU IN RIGHT BUTTOCKS AND 2.4MU IN LEFT BUTTOCKS
     Route: 030
     Dates: start: 20240905

REACTIONS (1)
  - Recalled product administered [Unknown]

NARRATIVE: CASE EVENT DATE: 20240905
